FAERS Safety Report 17996475 (Version 1)
Quarter: 2020Q3

REPORT INFORMATION
  Report Type: Report from Study
  Country: KR (occurrence: KR)
  Receive Date: 20200708
  Receipt Date: 20200708
  Transmission Date: 20201103
  Serious: No
  Sender: FDA-Public Use
  Company Number: KR-B.I. PHARMACEUTICALS,INC./RIDGEFIELD-2017-BI-023365

PATIENT
  Age: 59 Year
  Sex: Female
  Weight: 77.8 kg

DRUGS (5)
  1. GLUCODOWN OR [Concomitant]
     Indication: TYPE 2 DIABETES MELLITUS
     Dosage: 2 TABLETS OD
     Route: 048
     Dates: start: 20160712, end: 20160829
  2. JARDIANCE [Suspect]
     Active Substance: EMPAGLIFLOZIN
     Indication: TYPE 2 DIABETES MELLITUS
     Route: 048
     Dates: start: 20170124, end: 20170425
  3. NESINAMET [Concomitant]
     Indication: TYPE 2 DIABETES MELLITUS
     Dosage: 12.5/500MG
     Route: 048
     Dates: start: 20160830, end: 20170123
  4. NESINAMET [Concomitant]
     Dosage: 12.5/500MG
     Route: 048
     Dates: start: 20170425
  5. GLUCODOWN OR [Concomitant]
     Dosage: 2 TABLETS OD
     Route: 048
     Dates: start: 20170124, end: 20170424

REACTIONS (1)
  - Vulvovaginitis [Not Recovered/Not Resolved]

NARRATIVE: CASE EVENT DATE: 20170411
